FAERS Safety Report 7644028-7 (Version None)
Quarter: 2011Q3

REPORT INFORMATION
  Report Type: 
  Country: None (occurrence: None)
  Receive Date: 20110729
  Receipt Date: 20110715
  Transmission Date: 20111222
  Serious: Yes (Hospitalization, Other)
  Sender: FDA-Public Use
  Company Number: JP-CELGENEUS-087-50794-11072081

PATIENT
  Sex: Female

DRUGS (9)
  1. CARVEDILOL [Concomitant]
     Dosage: 10 MILLIGRAM
     Route: 048
  2. EURODIN [Concomitant]
     Dosage: 2 MILLIGRAM
     Route: 048
  3. POSTERISAN [Concomitant]
     Dosage: 6 MILLIGRAM
     Route: 054
  4. CELECOXIB [Concomitant]
     Dosage: 100 MILLIGRAM
     Route: 048
  5. VIDAZA [Suspect]
     Indication: MYELODYSPLASTIC SYNDROME
     Dosage: 75 MILLIGRAM
     Route: 058
     Dates: start: 20110324, end: 20110330
  6. VIDAZA [Suspect]
     Dosage: 75 MILLIGRAM/SQ. METER
     Route: 041
     Dates: start: 20110518, end: 20110524
  7. NEUROTROPIN [Concomitant]
     Dosage: 4 IU (INTERNATIONAL UNIT)
     Route: 048
  8. LANSOPRAZOLE [Concomitant]
     Dosage: 15 MILLIGRAM
     Route: 048
  9. EBASTINE [Concomitant]
     Dosage: 10 MILLIGRAM
     Route: 048

REACTIONS (3)
  - HAEMORRHOIDS [None]
  - FEBRILE NEUTROPENIA [None]
  - DRUG ERUPTION [None]
